FAERS Safety Report 7442522-5 (Version None)
Quarter: 2011Q2

REPORT INFORMATION
  Report Type: 
  Country: None (occurrence: None)
  Receive Date: 20110428
  Receipt Date: 20110412
  Transmission Date: 20111010
  Serious: No
  Sender: FDA-Public Use
  Company Number: US-B.I. PHARMACEUTICALS,INC./RIDGEFIELD-2011-BP-10629BP

PATIENT
  Age: 20 Year
  Sex: Female

DRUGS (1)
  1. ZANTAC 75 [Suspect]
     Dates: start: 20110412

REACTIONS (3)
  - PRURITUS GENERALISED [None]
  - SWELLING [None]
  - RASH [None]
